FAERS Safety Report 7421145-8 (Version None)
Quarter: 2011Q2

REPORT INFORMATION
  Report Type: 
  Country: None (occurrence: None)
  Receive Date: 20110418
  Receipt Date: 20110412
  Transmission Date: 20111010
  Serious: Yes (Death, Other)
  Sender: FDA-Public Use
  Company Number: US-GENENTECH-312258

PATIENT
  Sex: Male

DRUGS (5)
  1. SINGULAIR [Concomitant]
     Indication: PRODUCT USED FOR UNKNOWN INDICATION
     Dosage: 10 MG, 1/MONTH
  2. XOLAIR [Suspect]
     Indication: ASTHMA
  3. PROTONIX [Concomitant]
     Indication: PRODUCT USED FOR UNKNOWN INDICATION
     Dosage: 20 MG, 1/MONTH
  4. PRAVACHOL [Concomitant]
     Indication: PRODUCT USED FOR UNKNOWN INDICATION
  5. ALLEGRA [Concomitant]
     Indication: PRODUCT USED FOR UNKNOWN INDICATION
     Dosage: 60 MG, 1/MONTH

REACTIONS (1)
  - CARDIAC DISORDER [None]
